FAERS Safety Report 17173427 (Version 2)
Quarter: 2019Q4

REPORT INFORMATION
  Report Type: Spontaneous
  Country: SI (occurrence: SI)
  Receive Date: 20191218
  Receipt Date: 20191226
  Transmission Date: 20200122
  Serious: Yes (Other)
  Sender: FDA-Public Use
  Company Number: SI-ASTRAZENECA-2019SF71533

PATIENT
  Age: 17865 Day
  Sex: Male
  Weight: 100 kg

DRUGS (7)
  1. METHYLPREDNISOLONE. [Concomitant]
     Active Substance: METHYLPREDNISOLONE
     Indication: ASTHMA
  2. FOSTER [Concomitant]
     Active Substance: BECLOMETHASONE\FORMOTEROL
     Indication: ASTHMA
     Dosage: 3X3 PUFSS, BID, DAILY
     Route: 055
     Dates: start: 2007
  3. FASENRA [Suspect]
     Active Substance: BENRALIZUMAB
     Indication: ASTHMA
     Route: 058
     Dates: start: 20190614
  4. PANTOPRAZOLE [Concomitant]
     Active Substance: PANTOPRAZOLE
     Indication: GASTRITIS
  5. ALENDRONIC ACID [Concomitant]
     Active Substance: ALENDRONIC ACID
     Indication: GASTRITIS
     Route: 048
     Dates: start: 2007
  6. PREDNISOLONE. [Concomitant]
     Active Substance: PREDNISOLONE
     Indication: GASTRITIS
     Route: 048
     Dates: start: 2007
  7. FENOTEROL [Concomitant]
     Active Substance: FENOTEROL
     Indication: ASTHMA
     Dosage: 2 PUFFS DAILY

REACTIONS (4)
  - Rash erythematous [Not Recovered/Not Resolved]
  - Malignant melanoma [Unknown]
  - Pruritus [Unknown]
  - Hypersensitivity [Unknown]

NARRATIVE: CASE EVENT DATE: 20191001
